FAERS Safety Report 7343267-2 (Version None)
Quarter: 2011Q1

REPORT INFORMATION
  Report Type: 
  Country: None (occurrence: None)
  Receive Date: 20110308
  Receipt Date: 20110308
  Transmission Date: 20110831
  Serious: Yes (Hospitalization)
  Sender: FDA-Public Use
  Company Number: None

PATIENT
  Age: 37 Year
  Sex: Female

DRUGS (2)
  1. AMPHETAMINE AND DEXTROAMPHETAMINE SALTS [Suspect]
     Indication: DEPRESSION
     Dosage: 10/10 MG EVERY DAY PO
     Route: 048
     Dates: start: 20100827, end: 20101209
  2. CITALOPRAM HYDROBROMIDE [Suspect]
     Indication: DEPRESSION
     Dosage: 20 MG AT BEDTIME PO
     Route: 048
     Dates: start: 20100930, end: 20101209

REACTIONS (1)
  - SEROTONIN SYNDROME [None]
